FAERS Safety Report 4776514-1 (Version None)
Quarter: 2005Q3

REPORT INFORMATION
  Report Type: 
  Country: None (occurrence: None)
  Receive Date: 20050915
  Receipt Date: 20050830
  Transmission Date: 20060218
  Serious: Yes (Hospitalization)
  Sender: FDA-Public Use
  Company Number: DSA_26940_2005

PATIENT
  Age: 50 Year
  Sex: Female

DRUGS (6)
  1. TAVOR [Suspect]
     Dosage: 1.5 MG Q DAY PO
     Route: 048
  2. APONAL [Suspect]
     Dosage: 75 MG PO
     Route: 048
  3. BRONCHORETARD [Suspect]
     Dosage: 700 MG Q DAY PO
     Route: 048
  4. LITHIUM CARBONATE [Suspect]
     Dosage: 150 MG PO
     Route: 048
  5. NEUROCIL [Suspect]
     Dosage: 150 MG PO
     Route: 048
  6. ZYPREXA [Suspect]
     Dosage: 10 MG PO
     Route: 048

REACTIONS (5)
  - BLOOD CREATINE PHOSPHOKINASE INCREASED [None]
  - DELIRIUM [None]
  - DRUG LEVEL DECREASED [None]
  - DRY MOUTH [None]
  - MYDRIASIS [None]
